FAERS Safety Report 8710256 (Version 2)
Quarter: 2013Q1

REPORT INFORMATION
  Report Type: Report from Study
  Country: DE (occurrence: DE)
  Receive Date: 20120807
  Receipt Date: 20130206
  Transmission Date: 20140127
  Serious: Yes (Death)
  Sender: FDA-Public Use
  Company Number: DE-BRISTOL-MYERS SQUIBB COMPANY-16801938

PATIENT
  Age: 57 Year
  Sex: Male

DRUGS (9)
  1. ABATACEPT [Suspect]
     Indication: POLYARTHRITIS
     Dates: start: 200712, end: 200806
  2. ANAKINRA [Suspect]
     Indication: POLYARTHRITIS
     Dates: start: 200808, end: 200810
  3. TOCILIZUMAB [Suspect]
     Indication: POLYARTHRITIS
     Dates: start: 200903, end: 200906
  4. SULFASALAZINE [Suspect]
     Indication: POLYARTHRITIS
     Dates: start: 200907, end: 201103
  5. GOLIMUMAB [Suspect]
     Indication: POLYARTHRITIS
     Dates: start: 201103, end: 201108
  6. METHOTREXATE [Suspect]
     Indication: POLYARTHRITIS
     Dosage: NOV03-SEP08,MAY09-UNK,13APR10,08JUN10,22MAR11,26SEP11,15MAY12
     Dates: start: 200311
  7. ADALIMUMAB [Suspect]
     Indication: POLYARTHRITIS
     Dates: start: 200608, end: 200701
  8. CERTOLIZUMAB PEGOL [Suspect]
     Indication: POLYARTHRITIS
     Dates: start: 201109, end: 201110
  9. HYDROXYCHLOROQUINE [Suspect]

REACTIONS (1)
  - Metastatic bronchial carcinoma [Fatal]
